FAERS Safety Report 5167643-1 (Version None)
Quarter: 2006Q4

REPORT INFORMATION
  Report Type: 
  Country: None (occurrence: None)
  Receive Date: 20061204
  Receipt Date: 20061204
  Transmission Date: 20070319
  Serious: Yes (Other)
  Sender: FDA-Public Use
  Company Number: None

PATIENT
  Sex: Female
  Weight: 79.3795 kg

DRUGS (1)
  1. DOBUTAMINE HCL [Suspect]
     Dosage: MCG KG MIN  X1  IV
     Route: 042
     Dates: start: 20061121

REACTIONS (1)
  - NO THERAPEUTIC RESPONSE [None]
